FAERS Safety Report 11230627 (Version 1)
Quarter: 2015Q2

REPORT INFORMATION
  Report Type: Spontaneous
  Country: US (occurrence: None)
  Receive Date: 20150630
  Receipt Date: 20150630
  Transmission Date: 20150821
  Serious: No
  Sender: FDA-Public Use
  Company Number: None

PATIENT
  Age: 85 Year
  Sex: Female
  Weight: 59.88 kg

DRUGS (6)
  1. PROLIA [Suspect]
     Active Substance: DENOSUMAB
     Indication: OSTEOPOROSIS
     Dosage: 2 INJECTIONS YEARLY UNDER THE SKIN
     Route: 058
  2. BIOTIN [Concomitant]
     Active Substance: BIOTIN
  3. DOXEPIN [Concomitant]
     Active Substance: DOXEPIN
  4. PRESERVISION AREDS 2 [Concomitant]
  5. VITAMIN D [Concomitant]
     Active Substance: CHOLECALCIFEROL
  6. CITALOPRAM [Concomitant]
     Active Substance: CITALOPRAM HYDROBROMIDE

REACTIONS (5)
  - Oral cavity fistula [None]
  - No therapeutic response [None]
  - Tooth extraction [None]
  - Tooth impacted [None]
  - Oral pain [None]
